FAERS Safety Report 6968597-5 (Version None)
Quarter: 2010Q3

REPORT INFORMATION
  Report Type: 
  Country: None (occurrence: None)
  Receive Date: 20100907
  Receipt Date: 20100830
  Transmission Date: 20110219
  Serious: Yes (Other)
  Sender: FDA-Public Use
  Company Number: US-JNJFOC-20100900980

PATIENT
  Sex: Female
  Weight: 52.62 kg

DRUGS (9)
  1. ELMIRON [Suspect]
     Indication: CYSTITIS INTERSTITIAL
     Dosage: 30 CAPSULES/URETHRAL INFUSION
     Route: 066
  2. ELMIRON [Suspect]
     Dosage: 30 CAPSULES/URETHRAL INFUSION
     Route: 066
  3. RANITIDINE [Concomitant]
     Indication: HIATUS HERNIA
     Route: 048
  4. RANITIDINE [Concomitant]
     Indication: GASTROOESOPHAGEAL REFLUX DISEASE
     Route: 048
  5. LEVOTHYROXINE [Concomitant]
     Indication: THYROID DISORDER
     Route: 048
  6. ZOLOFT [Concomitant]
     Indication: IRRITABLE BOWEL SYNDROME
     Route: 048
  7. METAMUCIL-2 [Concomitant]
     Indication: IRRITABLE BOWEL SYNDROME
     Route: 048
  8. CALCIUM [Concomitant]
     Indication: BONE DENSITY DECREASED
     Route: 048
  9. MULTI-VITAMINS [Concomitant]
     Dosage: INDICATION- GENERAL USE
     Route: 048

REACTIONS (6)
  - CHOLECYSTECTOMY [None]
  - INCORRECT DOSE ADMINISTERED [None]
  - INCORRECT ROUTE OF DRUG ADMINISTRATION [None]
  - URETHRAL DILATATION [None]
  - VAGINAL HAEMORRHAGE [None]
  - VULVOVAGINAL PRURITUS [None]
